FAERS Safety Report 18484126 (Version 1)
Quarter: 2020Q4

REPORT INFORMATION
  Report Type: Spontaneous
  Country: PK (occurrence: PK)
  Receive Date: 20201109
  Receipt Date: 20201109
  Transmission Date: 20210114
  Serious: Yes (Other)
  Sender: FDA-Public Use
  Company Number: PK-AMGEN-PAKSP2020127782

PATIENT
  Age: 53 Year
  Sex: Male

DRUGS (5)
  1. DELTACORTRIL [Suspect]
     Active Substance: PREDNISOLONE
     Indication: PRODUCT USED FOR UNKNOWN INDICATION
     Dosage: 5 MG FOR TWO WEEKS 1-0-1, FOR TWO WEEKS 1-0-0
     Route: 065
  2. ENBREL [Suspect]
     Active Substance: ETANERCEPT
     Indication: RHEUMATOID ARTHRITIS
     Dosage: 50 MG, CYCLIC (AFTER EVERY 15 DAYS)
     Route: 058
  3. ENBREL [Suspect]
     Active Substance: ETANERCEPT
     Dosage: 50 MILLIGRAM, QWK
     Route: 058
     Dates: start: 20200905
  4. NEOPROX [Suspect]
     Active Substance: NAPROXEN
     Indication: PRODUCT USED FOR UNKNOWN INDICATION
     Dosage: 250 MG, 2X/DAY, 1-0-1
     Route: 065
  5. CAL-D (CALCIUM CARBONATE\COLECALCIFEROL) [Suspect]
     Active Substance: CALCIUM CARBONATE\CHOLECALCIFEROL
     Indication: PRODUCT USED FOR UNKNOWN INDICATION
     Dosage: UNK, 2X/DAY, 1-0-1
     Route: 065

REACTIONS (3)
  - Condition aggravated [Unknown]
  - COVID-19 [Unknown]
  - Off label use [Unknown]
